FAERS Safety Report 6450230-2 (Version None)
Quarter: 2009Q4

REPORT INFORMATION
  Report Type: 
  Country: None (occurrence: None)
  Receive Date: 20091116
  Receipt Date: 20090907
  Transmission Date: 20100525
  Serious: No
  Sender: FDA-Public Use
  Company Number: WAES 0909USA00940

PATIENT
  Age: 39 Year
  Sex: Female
  Weight: 56.6996 kg

DRUGS (7)
  1. ISENTRESS [Suspect]
     Indication: HIV INFECTION
     Dosage: 400 MG BID PO; 400 MG TID PO; 400 MG BID PO
     Route: 048
     Dates: start: 20081201, end: 20090906
  2. ISENTRESS [Suspect]
     Indication: HIV INFECTION
     Dosage: 400 MG BID PO; 400 MG TID PO; 400 MG BID PO
     Route: 048
     Dates: start: 20090907, end: 20090907
  3. ISENTRESS [Suspect]
     Indication: HIV INFECTION
     Dosage: 400 MG BID PO; 400 MG TID PO; 400 MG BID PO
     Route: 048
     Dates: start: 20090908
  4. AMBIEN [Concomitant]
  5. SEROQUEL [Concomitant]
  6. VIRACEPT [Concomitant]
  7. ALBUTEROL [Concomitant]

REACTIONS (2)
  - HOT FLUSH [None]
  - OVERDOSE [None]
